FAERS Safety Report 14728675 (Version 2)
Quarter: 2018Q2

REPORT INFORMATION
  Report Type: Spontaneous
  Country: US (occurrence: US)
  Receive Date: 20180406
  Receipt Date: 20180412
  Transmission Date: 20180711
  Serious: Yes (Other)
  Sender: FDA-Public Use
  Company Number: US-ASTRAZENECA-2018SE43823

PATIENT
  Age: 54 Year
  Sex: Male
  Weight: 91.6 kg

DRUGS (7)
  1. CRESTOR [Suspect]
     Active Substance: ROSUVASTATIN CALCIUM
     Indication: BLOOD TRIGLYCERIDES
     Route: 048
  2. CRESTOR [Suspect]
     Active Substance: ROSUVASTATIN CALCIUM
     Indication: BLOOD CHOLESTEROL
     Route: 048
     Dates: start: 2017
  3. CRESTOR [Suspect]
     Active Substance: ROSUVASTATIN CALCIUM
     Indication: BLOOD CHOLESTEROL
     Route: 048
  4. CRESTOR [Suspect]
     Active Substance: ROSUVASTATIN CALCIUM
     Indication: BLOOD TRIGLYCERIDES
     Dosage: 20 MG DAILY, GENERIC
     Route: 065
     Dates: start: 201709, end: 2017
  5. CRESTOR [Suspect]
     Active Substance: ROSUVASTATIN CALCIUM
     Indication: BLOOD TRIGLYCERIDES
     Route: 048
     Dates: start: 2017
  6. BENICAR [Concomitant]
     Active Substance: OLMESARTAN MEDOXOMIL
     Indication: BLOOD PRESSURE MEASUREMENT
     Route: 048
  7. CRESTOR [Suspect]
     Active Substance: ROSUVASTATIN CALCIUM
     Indication: BLOOD CHOLESTEROL
     Dosage: 20 MG DAILY, GENERIC
     Route: 065
     Dates: start: 201709, end: 2017

REACTIONS (7)
  - Adverse drug reaction [Unknown]
  - White blood cell count decreased [Recovered/Resolved]
  - Product substitution issue [Recovered/Resolved]
  - Hepatic enzyme increased [Recovered/Resolved]
  - Prostate cancer [Recovered/Resolved]
  - Muscle spasms [Recovered/Resolved]
  - General physical health deterioration [Recovered/Resolved]

NARRATIVE: CASE EVENT DATE: 2010
